FAERS Safety Report 7733441-5 (Version None)
Quarter: 2011Q3

REPORT INFORMATION
  Report Type: 
  Country: None (occurrence: None)
  Receive Date: 20110902
  Receipt Date: 20110902
  Transmission Date: 20111222
  Serious: Yes (Disabling, Other)
  Sender: FDA-Public Use
  Company Number: None

PATIENT
  Age: 32 Year
  Sex: Female
  Weight: 88.4514 kg

DRUGS (2)
  1. LYRICA [Suspect]
     Indication: FIBROMYALGIA
     Dosage: 50 MG LYRICA 1X 2 A DAY
  2. LYRICA [Suspect]
     Indication: NEURALGIA
     Dosage: 150 LYRICA 1 X 2 A DAY
     Dates: start: 20080601

REACTIONS (15)
  - PYREXIA [None]
  - SUICIDAL IDEATION [None]
  - PHARYNGEAL OEDEMA [None]
  - MYALGIA [None]
  - DISTURBANCE IN ATTENTION [None]
  - MOBILITY DECREASED [None]
  - CHEST PAIN [None]
  - SWELLING FACE [None]
  - ABDOMINAL PAIN [None]
  - HYPOCHONDRIASIS [None]
  - WEIGHT INCREASED [None]
  - FEELING ABNORMAL [None]
  - THINKING ABNORMAL [None]
  - MUSCLE SPASMS [None]
  - ANXIETY [None]
